FAERS Safety Report 22269928 (Version 1)
Quarter: 2023Q2

REPORT INFORMATION
  Report Type: Spontaneous
  Country: US (occurrence: None)
  Receive Date: 20230427
  Receipt Date: 20230427
  Transmission Date: 20230722
  Serious: Yes (Death)
  Sender: FDA-Public Use
  Company Number: None

PATIENT
  Sex: Male

DRUGS (2)
  1. IMATINIB [Suspect]
     Active Substance: IMATINIB
     Dosage: FREQUENCY : 3 TIMES A DAY;?
     Route: 048
  2. GLEEVEC [Suspect]
     Active Substance: IMATINIB MESYLATE

REACTIONS (1)
  - Death [None]
